FAERS Safety Report 5251656-5 (Version None)
Quarter: 2007Q1

REPORT INFORMATION
  Report Type: 
  Country: None (occurrence: None)
  Receive Date: 20070228
  Receipt Date: 20061103
  Transmission Date: 20070707
  Serious: No
  Sender: FDA-Public Use
  Company Number: US-GLAXOSMITHKLINE-A0622310A

PATIENT
  Age: 16 Year
  Sex: Female
  Weight: 50.9 kg

DRUGS (2)
  1. LAMICTAL [Suspect]
     Indication: BIPOLAR DISORDER
     Route: 048
     Dates: start: 20060901, end: 20061001
  2. IRON [Concomitant]

REACTIONS (1)
  - RASH [None]
